FAERS Safety Report 9125322 (Version 2)
Quarter: 2013Q1

REPORT INFORMATION
  Report Type: Spontaneous
  Country: US (occurrence: US)
  Receive Date: 20130227
  Receipt Date: 20130319
  Transmission Date: 20140127
  Serious: Yes (Death)
  Sender: FDA-Public Use
  Company Number: US-ELI_LILLY_AND_COMPANY-US201302004749

PATIENT
  Age: 44 None
  Sex: Male

DRUGS (21)
  1. OLANZAPINE [Suspect]
     Indication: SCHIZOPHRENIA
     Dosage: 300 MG, UNK
     Dates: start: 20111011
  2. OLANZAPINE [Suspect]
     Dosage: 300 MG, UNK
     Dates: start: 20111028
  3. OLANZAPINE [Suspect]
     Dosage: 300 MG, UNK
     Dates: start: 20111109
  4. OLANZAPINE [Suspect]
     Dosage: 300 MG, UNK
     Dates: start: 20111123
  5. OLANZAPINE [Suspect]
     Dosage: 300 MG, UNK
     Dates: start: 20111221
  6. OLANZAPINE [Suspect]
     Dosage: 300 MG, UNK
     Dates: start: 20120104
  7. OLANZAPINE [Suspect]
     Dosage: 300 MG, UNK
     Dates: start: 20120201
  8. OLANZAPINE [Suspect]
     Dosage: 300 MG, UNK
     Dates: start: 20120215
  9. OLANZAPINE [Suspect]
     Dosage: 300 MG, UNK
     Dates: start: 20120413
  10. OLANZAPINE [Suspect]
     Dosage: 300 MG, UNK
     Dates: start: 20120425
  11. OLANZAPINE [Suspect]
     Dosage: 300 MG, UNK
     Dates: start: 20120509
  12. OLANZAPINE [Suspect]
     Dosage: 300 MG, UNK
     Dates: start: 20120523
  13. OLANZAPINE [Suspect]
     Dosage: 300 MG, UNK
  14. OLANZAPINE [Suspect]
     Dosage: 300 MG, UNK
     Dates: start: 20120706
  15. OLANZAPINE [Suspect]
     Dosage: 300 MG, UNK
     Dates: start: 20120725
  16. OLANZAPINE [Suspect]
     Dosage: 300 MG, UNK
     Dates: start: 20120815
  17. OLANZAPINE [Suspect]
     Dosage: 300 MG, UNK
     Dates: start: 20120912
  18. OLANZAPINE [Suspect]
     Dosage: 300 MG, UNK
     Dates: start: 20120926
  19. OLANZAPINE [Suspect]
     Dosage: 300 MG, UNK
     Dates: start: 20121010
  20. OLANZAPINE [Suspect]
     Dosage: 405 MG, UNK
     Route: 030
     Dates: start: 20121024
  21. MULTIVITAMIN [Concomitant]
     Dosage: UNK UNK, BID

REACTIONS (1)
  - Toxicity to various agents [Fatal]
